FAERS Safety Report 7427821-5 (Version None)
Quarter: 2011Q2

REPORT INFORMATION
  Report Type: 
  Country: None (occurrence: None)
  Receive Date: 20110421
  Receipt Date: 20101019
  Transmission Date: 20111010
  Serious: Yes (Hospitalization, Other)
  Sender: FDA-Public Use
  Company Number: US-BAYER-201032691NA

PATIENT
  Age: 43 Year
  Sex: Female
  Weight: 70.748 kg

DRUGS (8)
  1. ASPIRIN [Concomitant]
     Dosage: UNK UNK, QD
     Route: 048
     Dates: start: 20080601
  2. CELEXA [Concomitant]
     Indication: DEPRESSION
     Dosage: 20 MG, BID
     Route: 048
     Dates: start: 20020101
  3. YAZ [Suspect]
     Indication: PREMENSTRUAL SYNDROME
  4. NSAID'S [Concomitant]
     Indication: PAIN
  5. PRILOSEC [Concomitant]
     Indication: GASTROOESOPHAGEAL REFLUX DISEASE
     Dosage: 20 MG, QD
     Route: 048
     Dates: start: 20020101
  6. NIASPAN [Concomitant]
     Dosage: 500 MG, HS
     Route: 048
     Dates: start: 20080601
  7. DICYCLOMINE [Concomitant]
     Indication: ABDOMINAL PAIN
     Dosage: 10 MG, PRN
     Route: 048
     Dates: start: 20080701
  8. YAZ [Suspect]
     Indication: CONTRACEPTION
     Dosage: UNK UNK, UNK
     Route: 048
     Dates: start: 20040301, end: 20090101

REACTIONS (6)
  - PROCEDURAL PAIN [None]
  - ABDOMINAL PAIN [None]
  - CHOLELITHIASIS [None]
  - GALLBLADDER DISORDER [None]
  - GASTROINTESTINAL DISORDER [None]
  - CHOLECYSTITIS CHRONIC [None]
